FAERS Safety Report 24410668 (Version 1)
Quarter: 2024Q4

REPORT INFORMATION
  Report Type: Other
  Country: US (occurrence: US)
  Receive Date: 20241008
  Receipt Date: 20241008
  Transmission Date: 20250115
  Serious: Yes (Other)
  Sender: B BRAUN
  Company Number: US-B.Braun Medical Inc.-2162634

PATIENT
  Age: 49 Year
  Sex: Male

DRUGS (4)
  1. LIDOCAINE HYDROCHLORIDE [Suspect]
     Active Substance: LIDOCAINE HYDROCHLORIDE
     Indication: Neck pain
  2. DEXAMETHASONE [Suspect]
     Active Substance: DEXAMETHASONE
  3. IOHEXOL [Concomitant]
     Active Substance: IOHEXOL
  4. SODIUM CHLORIDE [Concomitant]
     Active Substance: SODIUM CHLORIDE

REACTIONS (2)
  - Hiccups [Recovered/Resolved]
  - Off label use [Recovered/Resolved]
